FAERS Safety Report 15813211 (Version 1)
Quarter: 2019Q1

REPORT INFORMATION
  Report Type: Spontaneous
  Country: US (occurrence: US)
  Receive Date: 20190107
  Receipt Date: 20190107
  Transmission Date: 20190417
  Serious: Yes (Hospitalization)
  Sender: FDA-Public Use
  Company Number: None

PATIENT

DRUGS (3)
  1. ALDACTONE [Suspect]
     Active Substance: SPIRONOLACTONE
  2. COREG [Suspect]
     Active Substance: CARVEDILOL
  3. LASIX [Suspect]
     Active Substance: FUROSEMIDE

REACTIONS (7)
  - Hypotension [None]
  - Weight increased [None]
  - Asthenia [None]
  - Product dose omission [None]
  - Cardiac failure congestive [None]
  - Product communication issue [None]
  - PCO2 increased [None]
